FAERS Safety Report 5038877-1 (Version None)
Quarter: 2006Q2

REPORT INFORMATION
  Report Type: 
  Country: None (occurrence: None)
  Receive Date: 20060628
  Receipt Date: 20060628
  Transmission Date: 20061013
  Serious: Yes (Hospitalization)
  Sender: FDA-Public Use
  Company Number: None

PATIENT
  Sex: Female
  Weight: 57.9 kg

DRUGS (8)
  1. ERBITUX [Suspect]
     Indication: GASTRIC CANCER
     Dosage: 408 MG WEEKLY IV
     Route: 042
     Dates: start: 20051122, end: 20060615
  2. RADIATION [Concomitant]
  3. CRESTOR [Concomitant]
  4. ATENOLOL [Concomitant]
  5. COMPAZINE [Concomitant]
  6. KYTRIL [Concomitant]
  7. PREVACID [Concomitant]
  8. PERCOCET [Concomitant]

REACTIONS (5)
  - ANOREXIA [None]
  - BLOOD PRESSURE DECREASED [None]
  - FATIGUE [None]
  - NAUSEA [None]
  - VOMITING [None]
